FAERS Safety Report 20054320 (Version 1)
Quarter: 2021Q4

REPORT INFORMATION
  Report Type: Other
  Country: None (occurrence: SE)
  Receive Date: 20211110
  Receipt Date: 20211110
  Transmission Date: 20220303
  Serious: Yes (Hospitalization, Other)
  Sender: FDA-Public Use
  Company Number: SE-Appco Pharma LLC-2121683

PATIENT
  Age: 48 Year
  Sex: Male

DRUGS (3)
  1. VENLAFAXINE [Suspect]
     Active Substance: VENLAFAXINE HYDROCHLORIDE
     Indication: Product used for unknown indication
     Route: 065
  2. ZOLPIDEM [Suspect]
     Active Substance: ZOLPIDEM TARTRATE
     Route: 065
  3. PROPIOMAZINE [Suspect]
     Active Substance: PROPIOMAZINE
     Route: 065

REACTIONS (4)
  - Toxicity to various agents [Unknown]
  - Generalised tonic-clonic seizure [Recovered/Resolved]
  - Stress cardiomyopathy [Recovered/Resolved]
  - Cardiac arrest [Recovered/Resolved]
